FAERS Safety Report 19268066 (Version 3)
Quarter: 2021Q3

REPORT INFORMATION
  Report Type: Report from Study
  Country: US (occurrence: US)
  Receive Date: 20210517
  Receipt Date: 20210816
  Transmission Date: 20211014
  Serious: Yes (Hospitalization, Other)
  Sender: FDA-Public Use
  Company Number: NVSC2021US108238

PATIENT
  Sex: Male

DRUGS (1)
  1. KESIMPTA [Suspect]
     Active Substance: OFATUMUMAB
     Indication: MULTIPLE SCLEROSIS
     Dosage: 20 MG
     Route: 058
     Dates: start: 20210417

REACTIONS (5)
  - Inappropriate schedule of product administration [Unknown]
  - Product supply issue [Unknown]
  - Urinary tract infection [Unknown]
  - Headache [Recovered/Resolved]
  - Hernia [Unknown]
